FAERS Safety Report 23472065 (Version 1)
Quarter: 2024Q1

REPORT INFORMATION
  Report Type: Spontaneous
  Country: CA (occurrence: CA)
  Receive Date: 20240202
  Receipt Date: 20240202
  Transmission Date: 20240410
  Serious: Yes (Life-Threatening, Hospitalization, Other)
  Sender: FDA-Public Use
  Company Number: CA-ABBVIE-5619899

PATIENT
  Age: 65 Year
  Sex: Female
  Weight: 103 kg

DRUGS (4)
  1. MESALAMINE [Suspect]
     Active Substance: MESALAMINE
     Indication: Colitis ulcerative
     Dosage: FORM STRENGTH: 2G
     Route: 065
  2. ROSUVASTATIN [Concomitant]
     Active Substance: ROSUVASTATIN
     Indication: Product used for unknown indication
     Route: 058
  3. TELMISARTAN [Concomitant]
     Active Substance: TELMISARTAN
     Indication: Product used for unknown indication
  4. ACETAMINOPHEN [Concomitant]
     Active Substance: ACETAMINOPHEN
     Indication: Product used for unknown indication

REACTIONS (6)
  - Fascial infection [Recovering/Resolving]
  - Agranulocytosis [Recovering/Resolving]
  - Appendicitis [Recovering/Resolving]
  - Febrile neutropenia [Recovering/Resolving]
  - Oral candidiasis [Recovering/Resolving]
  - Necrotic lymphadenopathy [Recovering/Resolving]
